FAERS Safety Report 20866272 (Version 1)
Quarter: 2022Q2

REPORT INFORMATION
  Report Type: Spontaneous
  Country: US (occurrence: None)
  Receive Date: 20220523
  Receipt Date: 20220523
  Transmission Date: 20220721
  Serious: Yes (Hospitalization)
  Sender: FDA-Public Use
  Company Number: None

PATIENT
  Age: 75 Year
  Sex: Male
  Weight: 69 kg

DRUGS (1)
  1. WARFARIN SODIUM [Suspect]
     Active Substance: WARFARIN SODIUM
     Indication: Deep vein thrombosis
     Dosage: FREQUENCY : DAILY;?
     Route: 048
     Dates: start: 20160914, end: 20210719

REACTIONS (6)
  - Deep vein thrombosis [None]
  - Anticoagulation drug level above therapeutic [None]
  - Aortic thrombosis [None]
  - Metastases to central nervous system [None]
  - Cerebral haemorrhage [None]
  - Thrombosis [None]

NARRATIVE: CASE EVENT DATE: 20210728
